FAERS Safety Report 13438840 (Version 1)
Quarter: 2017Q2

REPORT INFORMATION
  Report Type: Spontaneous
  Country: US (occurrence: US)
  Receive Date: 20170413
  Receipt Date: 20170413
  Transmission Date: 20170830
  Serious: Yes (Other)
  Sender: FDA-Public Use
  Company Number: US-ROCHE-775970

PATIENT
  Age: 51 Year
  Sex: Female
  Weight: 54.4 kg

DRUGS (3)
  1. MEPRON [Concomitant]
     Active Substance: ATOVAQUONE
     Dosage: DOSE 750 (UNITS UNKNOWN)
     Route: 065
  2. AZITHROMYCIN ANHYDROUS. [Concomitant]
     Active Substance: AZITHROMYCIN ANHYDROUS
     Route: 065
  3. ROCEPHIN [Suspect]
     Active Substance: CEFTRIAXONE SODIUM
     Indication: LYME DISEASE
     Dosage: PATIENT RECEIVED MEDICINE FROM MONDAY TO THURSDAY
     Route: 042

REACTIONS (1)
  - Nephrolithiasis [Not Recovered/Not Resolved]

NARRATIVE: CASE EVENT DATE: 201103
